FAERS Safety Report 9854066 (Version 3)
Quarter: 2014Q1

REPORT INFORMATION
  Report Type: Spontaneous
  Country: JP (occurrence: JP)
  Receive Date: 20140129
  Receipt Date: 20140204
  Transmission Date: 20141002
  Serious: Yes (Life-Threatening, Other)
  Sender: FDA-Public Use
  Company Number: JP-PFIZER INC-2014008046

PATIENT
  Age: 77 Year
  Sex: Male
  Weight: 65 kg

DRUGS (7)
  1. ZOSYN [Suspect]
     Indication: PNEUMONIA
     Dosage: 4.5 G, UNK
     Route: 041
     Dates: start: 20131226, end: 20131226
  2. VEEN D [Concomitant]
     Indication: FLUID REPLACEMENT
     Dosage: 1000 ML, DAILY
     Route: 041
     Dates: start: 20131223, end: 20131226
  3. PANTOL [Concomitant]
     Indication: ILEUS PARALYTIC
     Dosage: 500 ML, DAILY
     Route: 041
     Dates: start: 20131223, end: 20131227
  4. BFLUID [Concomitant]
     Indication: FLUID REPLACEMENT
     Dosage: 1000 ML, DAILY
     Route: 041
     Dates: start: 20131226, end: 20131227
  5. TAKEPRON [Concomitant]
     Indication: GASTRIC ULCER HAEMORRHAGE
     Dosage: 60 MG, DAILY
     Route: 042
     Dates: start: 20131223, end: 20140109
  6. STRONG NEO MINOTIN C [Concomitant]
     Indication: ALCOHOLIC LIVER DISEASE
     Dosage: 40 ML, DAILY
     Route: 042
     Dates: start: 20131225, end: 20140109
  7. INTRALIPOS [Concomitant]
     Indication: NUTRITIONAL SUPPLEMENTATION
     Dosage: 100 ML, DAILY
     Route: 041
     Dates: start: 20131226, end: 20131227

REACTIONS (3)
  - Anaphylactic shock [Recovering/Resolving]
  - Acute respiratory failure [Recovering/Resolving]
  - Rash generalised [Recovered/Resolved]
